FAERS Safety Report 24009289 (Version 1)
Quarter: 2024Q2

REPORT INFORMATION
  Report Type: Spontaneous
  Country: TR (occurrence: TR)
  Receive Date: 20240625
  Receipt Date: 20240625
  Transmission Date: 20240716
  Serious: Yes (Hospitalization)
  Sender: FDA-Public Use
  Company Number: TR-MYLANLABS-2024M1057260

PATIENT
  Sex: Female

DRUGS (16)
  1. ALPRAZOLAM [Suspect]
     Active Substance: ALPRAZOLAM
     Indication: Depressive symptom
     Dosage: 1 MILLIGRAM, QD
     Route: 065
  2. ALPRAZOLAM [Suspect]
     Active Substance: ALPRAZOLAM
     Indication: Psychotic symptom
  3. QUETIAPINE [Suspect]
     Active Substance: QUETIAPINE
     Indication: Depressive symptom
     Dosage: 100 MILLIGRAM, QD
     Route: 065
  4. QUETIAPINE [Suspect]
     Active Substance: QUETIAPINE
     Indication: Psychotic symptom
  5. MIRTAZAPINE [Suspect]
     Active Substance: MIRTAZAPINE
     Indication: Depressive symptom
     Dosage: 15 MILLIGRAM, QD
     Route: 065
  6. MIRTAZAPINE [Suspect]
     Active Substance: MIRTAZAPINE
     Indication: Psychotic symptom
  7. TRIFLUOPERAZINE [Suspect]
     Active Substance: TRIFLUOPERAZINE HYDROCHLORIDE
     Indication: Depressive symptom
     Dosage: 1 MILLIGRAM, QD
     Route: 065
  8. TRIFLUOPERAZINE [Suspect]
     Active Substance: TRIFLUOPERAZINE HYDROCHLORIDE
     Indication: Psychotic symptom
  9. OLANZAPINE [Concomitant]
     Active Substance: OLANZAPINE
     Indication: Depressive symptom
     Dosage: 5 MILLIGRAM, QD
     Route: 065
  10. OLANZAPINE [Concomitant]
     Active Substance: OLANZAPINE
     Indication: Psychotic symptom
     Dosage: 10 MILLIGRAM, QD
     Route: 065
  11. LITHIUM [Concomitant]
     Active Substance: LITHIUM
     Indication: Bipolar disorder
     Dosage: UNK
     Route: 065
  12. LITHIUM [Concomitant]
     Active Substance: LITHIUM
     Dosage: 1200 MILLIGRAM, QD
     Route: 065
  13. LITHIUM [Concomitant]
     Active Substance: LITHIUM
     Dosage: 600 MILLIGRAM, QD
     Route: 065
  14. LITHIUM [Concomitant]
     Active Substance: LITHIUM
     Dosage: 300 MILLIGRAM, ON ALTRENATE DAYS
     Route: 065
  15. SERTRALINE [Concomitant]
     Active Substance: SERTRALINE HYDROCHLORIDE
     Indication: Depressive symptom
     Dosage: 25 MILLIGRAM, QD
     Route: 065
  16. SERTRALINE [Concomitant]
     Active Substance: SERTRALINE HYDROCHLORIDE
     Indication: Psychotic symptom

REACTIONS (1)
  - Drug ineffective [Unknown]
